FAERS Safety Report 10388919 (Version 1)
Quarter: 2014Q1

REPORT INFORMATION
  Report Type: Spontaneous
  Country: US (occurrence: None)
  Receive Date: 20140306
  Receipt Date: 20140306
  Transmission Date: 20141002
  Serious: Yes (Hospitalization)
  Sender: FDA-Public Use
  Company Number: 163-21880-13114797

PATIENT
  Age: 70 Year
  Sex: Male

DRUGS (21)
  1. REVLIMID [Suspect]
     Indication: PLASMA CELL MYELOMA
     Dosage: 50 MG, 21 IN 21 D, PO
     Route: 048
     Dates: start: 20110225
  2. POTASSIUM [Concomitant]
  3. MAGNESIUM [Concomitant]
  4. ZOMETA (ZOLEDRONIC ACID) [Concomitant]
  5. TAMSULOSIN HCL (TAMSULOSIN HYDROCHLORIDE) [Concomitant]
  6. VITAMIN B12 (CYANOCOBALAMIN) [Concomitant]
  7. FOLIC ACID [Concomitant]
  8. FINASTERIDE [Concomitant]
  9. CALCIUM CITRATE +D (CALCIUM CITRATE W/COLECALCIFEROL) [Concomitant]
  10. TYLENOL PM EXTRA STRENGTH (DOZOL) [Concomitant]
  11. DEXAMETHASONE [Concomitant]
  12. GLIPIZIDE ER (GLIPIZIDE) [Concomitant]
  13. METFORMIN HCL (METFORMIN HYDROCHLORIDE) [Concomitant]
  14. ALLEGRA (FEXOFENADINE HYDROCHLORIDE) [Concomitant]
  15. SOTALOL HCL (SOTALOL HYDROCHLORIDE) [Concomitant]
  16. WARFARIN SODIUM [Concomitant]
  17. GABAPENTIN [Concomitant]
  18. CHLORZOXAZONE [Concomitant]
  19. LASIX (FUROSEMIDE) [Concomitant]
  20. KLOR-CON M10 (POTASSIUM CHLORIDE) [Concomitant]
  21. KEPPRA (LEVETIRACETAMZ) [Concomitant]

REACTIONS (2)
  - Blood magnesium decreased [None]
  - Blood potassium decreased [None]
